FAERS Safety Report 16316740 (Version 5)
Quarter: 2019Q4

REPORT INFORMATION
  Report Type: Report from Study
  Country: US (occurrence: US)
  Receive Date: 20190515
  Receipt Date: 20191127
  Transmission Date: 20200122
  Serious: Yes (Hospitalization, Other)
  Sender: FDA-Public Use
  Company Number: PHEH2019US020439

PATIENT
  Age: 51 Year
  Sex: Female

DRUGS (1)
  1. AFINITOR [Suspect]
     Active Substance: EVEROLIMUS
     Indication: PARTIAL SEIZURES
     Dosage: 5 MG, QD
     Route: 048

REACTIONS (12)
  - Lip ulceration [Unknown]
  - Tongue blistering [Recovering/Resolving]
  - Pain [Unknown]
  - Weight decreased [Unknown]
  - Immune system disorder [Unknown]
  - Oxygen saturation decreased [Unknown]
  - Oral pain [Unknown]
  - Pneumonia [Unknown]
  - Splenomegaly [Unknown]
  - Chronic obstructive pulmonary disease [Unknown]
  - Cardiomegaly [Unknown]
  - Pyrexia [Unknown]
